FAERS Safety Report 4372391-1 (Version None)
Quarter: 2004Q2

REPORT INFORMATION
  Report Type: 
  Country: None (occurrence: None)
  Receive Date: 20040603
  Receipt Date: 20040518
  Transmission Date: 20050107
  Serious: Yes (Other)
  Sender: FDA-Public Use
  Company Number: A-US2004-05602

PATIENT
  Age: 72 Year
  Sex: Male
  Weight: 83.9 kg

DRUGS (13)
  1. TRACLEER [Suspect]
     Indication: PULMONARY HYPERTENSION
     Dosage: 62.5 MG, QD, ORAL
     Route: 048
     Dates: start: 20040322, end: 20040324
  2. ACETYLSALICYLIC ACID SRT [Concomitant]
  3. PROCARDIA XL [Concomitant]
  4. COZAAR [Concomitant]
  5. TRENTAL [Concomitant]
  6. CARDIZEM [Concomitant]
  7. RANITIDINE [Concomitant]
  8. FUROSEMIDE [Concomitant]
  9. TENORMIN [Concomitant]
  10. LIPITOR [Concomitant]
  11. ALLOPURINOL [Concomitant]
  12. NTG (GLYCERYL TRINITRATE) [Concomitant]
  13. COLCHICINE (COLCHICINE) [Concomitant]

REACTIONS (2)
  - RASH GENERALISED [None]
  - SWELLING FACE [None]
